FAERS Safety Report 24937076 (Version 4)
Quarter: 2025Q4

REPORT INFORMATION
  Report Type: Report from Study
  Country: US (occurrence: US)
  Receive Date: 20250206
  Receipt Date: 20251224
  Transmission Date: 20260117
  Serious: No
  Sender: PFIZER
  Company Number: US-PFIZER INC-202500022564

PATIENT
  Age: 12 Year
  Sex: Female

DRUGS (2)
  1. GENOTROPIN [Suspect]
     Active Substance: SOMATROPIN
     Dosage: 1.8 MG
     Dates: start: 202501
  2. GENOTROPIN [Suspect]
     Active Substance: SOMATROPIN
     Dosage: 1.6 MG
     Dates: start: 20250130

REACTIONS (5)
  - Incorrect dose administered by device [Unknown]
  - Device use error [Unknown]
  - Poor quality device used [Unknown]
  - Device malfunction [Unknown]
  - Device occlusion [Unknown]

NARRATIVE: CASE EVENT DATE: 20250130
